FAERS Safety Report 9339744 (Version 1)
Quarter: 2013Q2

REPORT INFORMATION
  Report Type: Spontaneous
  Country: US (occurrence: US)
  Receive Date: 20130610
  Receipt Date: 20130610
  Transmission Date: 20140414
  Serious: Yes (Life-Threatening)
  Sender: FDA-Public Use
  Company Number: US-ASTRAZENECA-2013SE41319

PATIENT
  Age: 52 Year
  Sex: Female
  Weight: 106.6 kg

DRUGS (6)
  1. SEROQUEL [Suspect]
     Indication: MANIA
     Route: 048
     Dates: start: 1997, end: 2007
  2. SEROQUEL [Suspect]
     Indication: SCHIZOPHRENIA
     Route: 048
     Dates: start: 1997, end: 2007
  3. SEROQUEL [Suspect]
     Indication: MANIA
     Route: 048
     Dates: start: 2007
  4. SEROQUEL [Suspect]
     Indication: SCHIZOPHRENIA
     Route: 048
     Dates: start: 2007
  5. CLONOPIN [Concomitant]
  6. PROLIXIN D [Concomitant]
     Route: 050

REACTIONS (9)
  - Overdose [Unknown]
  - Coma [Unknown]
  - Suicide attempt [Unknown]
  - Fluid retention [Unknown]
  - Therapeutic response unexpected [Unknown]
  - Dizziness [Unknown]
  - Syncope [Unknown]
  - Dry mouth [Unknown]
  - Intentional drug misuse [Unknown]
